FAERS Safety Report 8612389-8 (Version None)
Quarter: 2012Q3

REPORT INFORMATION
  Report Type: 
  Country: None (occurrence: None)
  Receive Date: 20120813
  Receipt Date: 20120813
  Transmission Date: 20120928
  Serious: No
  Sender: FDA-Public Use
  Company Number: None

PATIENT
  Sex: Female

DRUGS (1)
  1. ENBREL [Suspect]
     Indication: PSORIASIS
     Dosage: 50MG ONCE PER WEEK SUBCUTANEOUSLY
     Route: 058
     Dates: start: 20120222, end: 20120808

REACTIONS (3)
  - OEDEMA PERIPHERAL [None]
  - EYE SWELLING [None]
  - DYSPNOEA [None]
